FAERS Safety Report 22301394 (Version 2)
Quarter: 2023Q2

REPORT INFORMATION
  Report Type: Spontaneous
  Country: JP (occurrence: JP)
  Receive Date: 20230509
  Receipt Date: 20230523
  Transmission Date: 20230721
  Serious: Yes (Other)
  Sender: FDA-Public Use
  Company Number: JP-SA-2023SA142714

PATIENT
  Age: 68 Year
  Sex: Male

DRUGS (1)
  1. DOCETAXEL [Suspect]
     Active Substance: DOCETAXEL
     Indication: Prostate cancer
     Route: 065

REACTIONS (5)
  - Skin ulcer [Recovering/Resolving]
  - Haemorrhage [Recovering/Resolving]
  - Pain in extremity [Recovering/Resolving]
  - Parosmia [Recovering/Resolving]
  - Hyperkeratosis [Recovering/Resolving]
